FAERS Safety Report 12523693 (Version 1)
Quarter: 2016Q3

REPORT INFORMATION
  Report Type: Spontaneous
  Country: US (occurrence: US)
  Receive Date: 20160704
  Receipt Date: 20160704
  Transmission Date: 20161109
  Serious: Yes (Death, Life-Threatening, Hospitalization, Other)
  Sender: FDA-Public Use
  Company Number: US-CIPLA-2016US07746

PATIENT

DRUGS (3)
  1. ENOXAPARIN [Suspect]
     Active Substance: ENOXAPARIN
     Indication: ANTICOAGULATION DRUG LEVEL BELOW THERAPEUTIC
     Dosage: 60 MG, BID
     Route: 058
  2. WARFARIN [Suspect]
     Active Substance: WARFARIN
     Indication: DEEP VEIN THROMBOSIS
     Dosage: 7.5 MG, QD
     Route: 065
  3. WARFARIN [Suspect]
     Active Substance: WARFARIN
     Dosage: 10 MG, QD
     Route: 065

REACTIONS (10)
  - Death [Fatal]
  - Hydrocephalus [Unknown]
  - Somnolence [Unknown]
  - International normalised ratio fluctuation [Unknown]
  - Headache [Unknown]
  - Coagulopathy [Unknown]
  - Respiration abnormal [Unknown]
  - Tachycardia [Unknown]
  - Hypotension [Unknown]
  - Tumour haemorrhage [Unknown]
